FAERS Safety Report 6288900-1 (Version None)
Quarter: 2009Q3

REPORT INFORMATION
  Report Type: 
  Country: None (occurrence: None)
  Receive Date: 20090729
  Receipt Date: 20090715
  Transmission Date: 20100115
  Serious: Yes (Other)
  Sender: FDA-Public Use
  Company Number: US-MYLANLABS-2009S1012456

PATIENT
  Age: 17 Year
  Sex: Male

DRUGS (7)
  1. ELETRIPTAN [Suspect]
     Indication: MIGRAINE PROPHYLAXIS
  2. DIPHENHYDRAMINE HCL [Suspect]
     Indication: INSOMNIA
     Dosage: AT NIGHT, AS NEEDED
  3. VENLAFAXINE HYDROCHLORIDE [Suspect]
     Indication: DEPRESSION
     Route: 048
  4. VENLAFAXINE HYDROCHLORIDE [Suspect]
     Route: 048
  5. IBUPROFEN [Suspect]
     Indication: MIGRAINE
     Dosage: TOOK REGULARLY
  6. LAMOTRIGINE [Concomitant]
     Indication: MIGRAINE
  7. HYDROCODONE BITARTRATE + ACETAMINOPHEN [Concomitant]
     Indication: MIGRAINE
     Dosage: ONCE OR TWICE WEEKLY, MAXIMUM ONCE DAILY

REACTIONS (3)
  - DELIRIUM [None]
  - HALLUCINATION, TACTILE [None]
  - HALLUCINATION, VISUAL [None]
